FAERS Safety Report 4729447-0 (Version None)
Quarter: 2005Q3

REPORT INFORMATION
  Report Type: 
  Country: None (occurrence: None)
  Receive Date: 20050728
  Receipt Date: 20050721
  Transmission Date: 20060218
  Serious: No
  Sender: FDA-Public Use
  Company Number: 232544K05USA

PATIENT
  Age: 46 Year
  Sex: Female

DRUGS (1)
  1. REBIF [Suspect]
     Indication: MULTIPLE SCLEROSIS
     Dosage: 44 MCG, 3 IN 1 WEEKS, SUBCUTANEOUS
     Route: 058
     Dates: start: 20030805

REACTIONS (10)
  - BALANCE DISORDER [None]
  - DEHYDRATION [None]
  - DIZZINESS [None]
  - FATIGUE [None]
  - MALAISE [None]
  - MULTIPLE SCLEROSIS [None]
  - NAUSEA [None]
  - NEUROPATHY PERIPHERAL [None]
  - PAIN [None]
  - VOMITING [None]
